FAERS Safety Report 4400953-1 (Version None)
Quarter: 2004Q3

REPORT INFORMATION
  Report Type: 
  Country: None (occurrence: None)
  Receive Date: 20040907
  Receipt Date: 20030814
  Transmission Date: 20050211
  Serious: No
  Sender: FDA-Public Use
  Company Number: US-BRISTOL-MYERS SQUIBB COMPANY-12364055

PATIENT
  Age: 94 Year
  Sex: Female
  Weight: 52 kg

DRUGS (6)
  1. COUMADIN [Suspect]
     Indication: HEART RATE INCREASED
     Route: 048
  2. COUMADIN [Suspect]
     Indication: ATRIAL FIBRILLATION
     Route: 048
  3. XANAX [Concomitant]
     Dosage: AT BED TIME
  4. TIAZAC [Concomitant]
  5. NITROGLYCERIN [Concomitant]
  6. PREDNISONE [Concomitant]

REACTIONS (11)
  - ANAEMIA [None]
  - ASTHENIA [None]
  - COUGH [None]
  - DRY MOUTH [None]
  - DYSURIA [None]
  - FATIGUE [None]
  - INTERNATIONAL NORMALISED RATIO DECREASED [None]
  - PALLOR [None]
  - PHARYNGOLARYNGEAL PAIN [None]
  - SENSATION OF HEAVINESS [None]
  - TREMOR [None]
